FAERS Safety Report 23405202 (Version 2)
Quarter: 2024Q1

REPORT INFORMATION
  Report Type: Spontaneous
  Country: DK (occurrence: DK)
  Receive Date: 20240116
  Receipt Date: 20240327
  Transmission Date: 20240410
  Serious: Yes (Other)
  Sender: FDA-Public Use
  Company Number: DK-IGSA-BIG0026995

PATIENT
  Age: 68 Year
  Sex: Male

DRUGS (4)
  1. ALBUMIN HUMAN [Suspect]
     Active Substance: ALBUMIN HUMAN
     Indication: Sepsis
     Dosage: UNK
     Route: 065
  2. ALBUMIN HUMAN [Suspect]
     Active Substance: ALBUMIN HUMAN
     Indication: Skin test
     Dosage: UNK
     Route: 061
  3. ALBUMIN HUMAN [Suspect]
     Active Substance: ALBUMIN HUMAN
     Indication: Skin test
     Dosage: UNK
     Route: 023
  4. ALBUMIN HUMAN [Suspect]
     Active Substance: ALBUMIN HUMAN
     Indication: Histamine release test

REACTIONS (8)
  - Type I hypersensitivity [Unknown]
  - Tryptase increased [Unknown]
  - Cardiac arrest [Unknown]
  - Rash [Unknown]
  - No adverse event [Unknown]
  - Off label use [Unknown]
  - Skin test positive [Unknown]
  - Histamine level increased [Unknown]
